FAERS Safety Report 18380500 (Version 4)
Quarter: 2022Q1

REPORT INFORMATION
  Report Type: Other
  Country: JP (occurrence: JP)
  Receive Date: 20201013
  Receipt Date: 20220301
  Transmission Date: 20220423
  Serious: Yes (Other)
  Sender: FDA-Public Use
  Company Number: JP-ROCHE-2692856

PATIENT
  Age: 22 Year
  Sex: Female
  Weight: 53 kg

DRUGS (16)
  1. TOCILIZUMAB [Suspect]
     Active Substance: TOCILIZUMAB
     Indication: Still^s disease
     Route: 041
  2. TOCILIZUMAB [Suspect]
     Active Substance: TOCILIZUMAB
     Route: 041
  3. METHYLPREDNISOLONE [Suspect]
     Active Substance: METHYLPREDNISOLONE
     Indication: Still^s disease
     Route: 065
  4. PREDNISOLONE [Suspect]
     Active Substance: PREDNISOLONE
     Indication: Still^s disease
     Dosage: ORAL DRUG UNSPECIFIED FORM
     Route: 048
  5. PREDNISOLONE [Suspect]
     Active Substance: PREDNISOLONE
     Route: 048
  6. CYCLOSPORINE [Suspect]
     Active Substance: CYCLOSPORINE
     Indication: Still^s disease
     Route: 065
  7. BETAMETHASONE [Suspect]
     Active Substance: BETAMETHASONE
     Indication: Still^s disease
     Route: 042
  8. BETAMETHASONE [Suspect]
     Active Substance: BETAMETHASONE
     Route: 042
  9. BETAMETHASONE [Suspect]
     Active Substance: BETAMETHASONE
     Route: 042
  10. BETAMETHASONE [Suspect]
     Active Substance: BETAMETHASONE
     Route: 042
  11. BETAMETHASONE [Suspect]
     Active Substance: BETAMETHASONE
     Route: 042
  12. GANCICLOVIR [Concomitant]
     Active Substance: GANCICLOVIR
     Indication: Still^s disease
     Dosage: DOSAGE IS UNCERTAIN.
     Route: 065
  13. TACROLIMUS [Concomitant]
     Active Substance: TACROLIMUS
     Indication: Still^s disease
     Dosage: 3MG,ONCE IN1DAY
     Route: 065
  14. ETANERCEPT [Concomitant]
     Active Substance: ETANERCEPT
     Dosage: 50MG,ONCE IN1WEEK
     Route: 065
  15. DEXAMETHASONE [Concomitant]
     Active Substance: DEXAMETHASONE
     Dosage: 2.5MG,ONCE IN1DAY
     Route: 042
  16. VALACYCLOVIR HYDROCHLORIDE [Concomitant]
     Active Substance: VALACYCLOVIR HYDROCHLORIDE
     Dosage: DOSAGE IS UNCERTAIN.
     Route: 065

REACTIONS (3)
  - Haemophagocytic lymphohistiocytosis [Unknown]
  - Cytomegalovirus test positive [Unknown]
  - Off label use [Unknown]
